FAERS Safety Report 23248259 (Version 1)
Quarter: 2023Q4

REPORT INFORMATION
  Report Type: Other
  Country: IN (occurrence: IN)
  Receive Date: 20231130
  Receipt Date: 20231130
  Transmission Date: 20240110
  Serious: Yes (Other)
  Sender: FDA-Public Use
  Company Number: IN-Bion-012384

PATIENT
  Age: 43 Year
  Sex: Female

DRUGS (1)
  1. NAPROXEN SODIUM [Suspect]
     Active Substance: NAPROXEN\NAPROXEN SODIUM
     Indication: Osteoarthritis
     Route: 048

REACTIONS (2)
  - Generalised bullous fixed drug eruption [Unknown]
  - Intentional product misuse [Unknown]
